FAERS Safety Report 24103996 (Version 1)
Quarter: 2024Q3

REPORT INFORMATION
  Report Type: Spontaneous
  Country: US (occurrence: US)
  Receive Date: 20240717
  Receipt Date: 20240717
  Transmission Date: 20241016
  Serious: Yes (Hospitalization)
  Sender: BRISTOL MYERS SQUIBB
  Company Number: US-BRISTOL-MYERS SQUIBB COMPANY-2024-113371

PATIENT
  Age: 88 Year
  Sex: Male

DRUGS (3)
  1. POMALYST [Suspect]
     Active Substance: POMALIDOMIDE
     Indication: Plasma cell myeloma
     Dates: start: 20190626
  2. POMALYST [Suspect]
     Active Substance: POMALIDOMIDE
     Dates: start: 2022
  3. POMALYST [Suspect]
     Active Substance: POMALIDOMIDE
     Dosage: DOSE : 2 MG;     FREQ : TAKE ONE CAPSULE DAILY ON DAYS 1 - 21 EVERY 28 DAYS
     Route: 048
     Dates: start: 2024

REACTIONS (1)
  - Adverse event [Unknown]

NARRATIVE: CASE EVENT DATE: 20240101
